FAERS Safety Report 4685821-2 (Version None)
Quarter: 2005Q2

REPORT INFORMATION
  Report Type: 
  Country: None (occurrence: None)
  Receive Date: 20050609
  Receipt Date: 20050601
  Transmission Date: 20051028
  Serious: Yes (Other)
  Sender: FDA-Public Use
  Company Number: US-JNJFOC-20050501508

PATIENT
  Sex: Male
  Weight: 106 kg

DRUGS (10)
  1. REMICADE [Suspect]
     Route: 042
  2. REMICADE [Suspect]
     Indication: CROHN'S DISEASE
     Dosage: 600 MG (6 VIALS)
     Route: 042
  3. PREDNISONE TAB [Concomitant]
  4. SULFASALAZINE [Concomitant]
  5. FOLIC ACID [Concomitant]
  6. 6MP [Concomitant]
  7. NEXIUM [Concomitant]
  8. IBUPROFEN [Concomitant]
  9. LEXAPRO [Concomitant]
  10. TRAZODONE [Concomitant]

REACTIONS (6)
  - FLUSHING [None]
  - HYPERHIDROSIS [None]
  - INFUSION RELATED REACTION [None]
  - LOSS OF CONSCIOUSNESS [None]
  - NAUSEA [None]
  - VOMITING [None]
